FAERS Safety Report 16794505 (Version 2)
Quarter: 2019Q3

REPORT INFORMATION
  Report Type: Spontaneous
  Country: JP (occurrence: JP)
  Receive Date: 20190911
  Receipt Date: 20190918
  Transmission Date: 20191005
  Serious: Yes (Other)
  Sender: FDA-Public Use
  Company Number: JP-ASTRAZENECA-2019SF28227

PATIENT
  Age: 81 Year
  Sex: Male

DRUGS (4)
  1. SYMBICORT [Suspect]
     Active Substance: BUDESONIDE\FORMOTEROL FUMARATE DIHYDRATE
     Dosage: 4 PUFFS DAILY, NUMBER OF SEPARATE DOSAGES UNKNOWN UNKNOWN
     Route: 055
  2. THEOPHYLLINE [Concomitant]
     Active Substance: THEOPHYLLINE ANHYDROUS
     Route: 065
  3. MONTELUKAST [Concomitant]
     Active Substance: MONTELUKAST SODIUM
     Route: 065
  4. TIOTROPIUM BROMIDE HYDRATE [Concomitant]
     Dosage: 5.0UG UNKNOWN
     Route: 055

REACTIONS (1)
  - Lung neoplasm malignant [Unknown]
